FAERS Safety Report 8103680-2 (Version None)
Quarter: 2012Q1

REPORT INFORMATION
  Report Type: 
  Country: None (occurrence: None)
  Receive Date: 20120201
  Receipt Date: 20120118
  Transmission Date: 20120608
  Serious: Yes (Life-Threatening, Hospitalization)
  Sender: FDA-Public Use
  Company Number: JP-ROCHE-1007001

PATIENT
  Sex: Female
  Weight: 40 kg

DRUGS (12)
  1. ACTEMRA [Suspect]
     Dosage: DOSAGE IS UNCERTAIN.
     Route: 041
     Dates: start: 20110907, end: 20111005
  2. METHOTREXATE [Concomitant]
     Indication: RHEUMATOID ARTHRITIS
     Route: 048
     Dates: start: 20020101
  3. CALCIUM ASPARTATE [Concomitant]
     Indication: RHEUMATOID ARTHRITIS
     Route: 048
     Dates: start: 20020101
  4. MAGNESIUM OXIDE [Concomitant]
     Route: 048
     Dates: start: 20020101
  5. CALFINA [Concomitant]
     Route: 048
     Dates: start: 20020101
  6. PREDNISOLONE [Concomitant]
     Indication: RHEUMATOID ARTHRITIS
     Route: 048
     Dates: start: 20020101
  7. ALENDRONATE SODIUM [Concomitant]
     Route: 048
     Dates: start: 20020101
  8. FOLIC ACID [Concomitant]
     Route: 048
     Dates: start: 20020101
  9. CLARITHROMYCIN [Concomitant]
     Route: 048
     Dates: start: 20020101
  10. SAWATENE [Concomitant]
     Indication: BRONCHITIS CHRONIC
     Route: 048
     Dates: start: 20020101
  11. ACTEMRA [Suspect]
     Indication: RHEUMATOID ARTHRITIS
     Dosage: DOSAGE IS UNCERTAIN.
     Route: 041
     Dates: start: 20110209, end: 20110502
  12. REBAMIPIDE [Concomitant]
     Route: 048
     Dates: start: 20020101

REACTIONS (2)
  - LUNG INFECTION PSEUDOMONAL [None]
  - PLEURISY [None]
